FAERS Safety Report 17822700 (Version 1)
Quarter: 2020Q2

REPORT INFORMATION
  Report Type: Spontaneous
  Country: DE (occurrence: DE)
  Receive Date: 20200526
  Receipt Date: 20200526
  Transmission Date: 20200714
  Serious: Yes (Hospitalization)
  Sender: FDA-Public Use
  Company Number: DE-009507513-2005DEU007686

PATIENT
  Age: 34 Year
  Sex: Female

DRUGS (3)
  1. GONAL-F [Suspect]
     Active Substance: FOLLITROPIN
     Dosage: UNK
  2. ORGALUTRAN [Suspect]
     Active Substance: GANIRELIX ACETATE
     Dosage: UNK
  3. OVITRELLE [Suspect]
     Active Substance: CHORIOGONADOTROPIN ALFA
     Dosage: UNK

REACTIONS (2)
  - Ovarian hyperstimulation syndrome [Recovered/Resolved]
  - Ascites [Recovered/Resolved]

NARRATIVE: CASE EVENT DATE: 20161016
